FAERS Safety Report 9977171 (Version 1)
Quarter: 2014Q1

REPORT INFORMATION
  Report Type: Report from Study
  Country: US (occurrence: US)
  Receive Date: 20140306
  Receipt Date: 20140306
  Transmission Date: 20141002
  Serious: No
  Sender: FDA-Public Use
  Company Number: US-ABBVIE-13P-163-1167078-00

PATIENT
  Age: 64 Year
  Sex: Female

DRUGS (9)
  1. HUMIRA [Suspect]
     Indication: CROHN^S DISEASE
     Dates: start: 20130918
  2. HUMIRA [Suspect]
     Dates: start: 20131002
  3. HUMIRA [Suspect]
     Dates: start: 20131016
  4. IMURAN [Concomitant]
     Indication: PRODUCT USED FOR UNKNOWN INDICATION
     Dosage: 200MG DAILY
  5. ENTOCORT [Concomitant]
     Indication: CROHN^S DISEASE
     Dosage: 3MG DAILY
  6. CYMBALTA [Concomitant]
     Indication: DEPRESSION
     Dosage: 90MG DAILY
  7. CYMBALTA [Concomitant]
     Indication: ANXIETY
  8. CARVEDILOL [Concomitant]
     Indication: PRODUCT USED FOR UNKNOWN INDICATION
     Dosage: 12MG DAILY
  9. PRINIVIL [Concomitant]
     Indication: HYPERTENSION
     Dosage: 10MG DAILY

REACTIONS (3)
  - Oropharyngeal pain [Recovering/Resolving]
  - Injection site pain [Unknown]
  - Injection site erythema [Unknown]
